FAERS Safety Report 21911769 (Version 1)
Quarter: 2023Q1

REPORT INFORMATION
  Report Type: Report from Study
  Country: GB (occurrence: GB)
  Receive Date: 20230125
  Receipt Date: 20230125
  Transmission Date: 20230418
  Serious: Yes (Other)
  Sender: FDA-Public Use
  Company Number: GB-MHRA-MED-202301191510132590-SYPWG

PATIENT

DRUGS (1)
  1. LATUDA [Suspect]
     Active Substance: LURASIDONE HYDROCHLORIDE
     Indication: Psychotic disorder
     Dosage: 74MG ONCE A DAY IN MORNING.
     Route: 048
     Dates: end: 20221111

REACTIONS (1)
  - Pancytopenia [Recovered/Resolved]
